FAERS Safety Report 9409498 (Version 1)
Quarter: 2013Q3

REPORT INFORMATION
  Report Type: Spontaneous
  Country: CA (occurrence: CA)
  Receive Date: 20130719
  Receipt Date: 20130719
  Transmission Date: 20140515
  Serious: Yes (Other)
  Sender: FDA-Public Use
  Company Number: CA-PFIZER INC-2013211565

PATIENT
  Age: 54 Year
  Sex: Female

DRUGS (3)
  1. SOMAVERT [Suspect]
     Dosage: 10 MG, UNK
     Dates: start: 200605
  2. SOMAVERT [Suspect]
     Dosage: 15 MG, UNK
  3. SOMAVERT [Suspect]
     Dosage: 20 MG, UNK
     Dates: start: 200803

REACTIONS (1)
  - Neoplasm recurrence [Unknown]
